FAERS Safety Report 7525469-5 (Version None)
Quarter: 2011Q2

REPORT INFORMATION
  Report Type: 
  Country: None (occurrence: None)
  Receive Date: 20110606
  Receipt Date: 20110601
  Transmission Date: 20111010
  Serious: Yes (Death, Hospitalization, Other)
  Sender: FDA-Public Use
  Company Number: DE-ROCHE-777451

PATIENT
  Sex: Female
  Weight: 66 kg

DRUGS (2)
  1. AVASTIN [Suspect]
     Route: 042
     Dates: start: 20100621, end: 20100816
  2. XELODA [Concomitant]
     Route: 048
     Dates: start: 20100621, end: 20100823

REACTIONS (8)
  - ABDOMINAL PAIN [None]
  - ANAEMIA [None]
  - FATIGUE [None]
  - PAIN [None]
  - ANAL FISSURE [None]
  - SEPSIS [None]
  - RECTAL HAEMORRHAGE [None]
  - INTESTINAL PERFORATION [None]
